FAERS Safety Report 4474445-8 (Version None)
Quarter: 2004Q4

REPORT INFORMATION
  Report Type: 
  Country: None (occurrence: None)
  Receive Date: 20041012
  Receipt Date: 20040924
  Transmission Date: 20050328
  Serious: Yes (Disabling)
  Sender: FDA-Public Use
  Company Number: 2004-DE-04817UP

PATIENT
  Age: 78 Year
  Sex: Female

DRUGS (1)
  1. MIRAPEXIN (PRAMIPEXOLE DIHYDROCHLORIDE) (TA) (PRAMIPEXOLE) [Suspect]
     Indication: PARKINSON'S DISEASE
     Dosage: 2.1 MG (0.7 MG, 3 IN 1 D), PO
     Route: 048
     Dates: end: 20040816

REACTIONS (3)
  - DYSPHAGIA [None]
  - PHARYNGITIS [None]
  - PHARYNGOLARYNGEAL PAIN [None]
